FAERS Safety Report 6278768-1 (Version None)
Quarter: 2009Q3

REPORT INFORMATION
  Report Type: 
  Country: None (occurrence: None)
  Receive Date: 20090721
  Receipt Date: 20090707
  Transmission Date: 20100115
  Serious: Yes (Hospitalization)
  Sender: FDA-Public Use
  Company Number: 2009002041

PATIENT
  Sex: Female

DRUGS (9)
  1. TARCEVA [Suspect]
     Indication: NON-SMALL CELL LUNG CANCER
     Dosage: 150 MG, QD, ORAL
     Route: 048
     Dates: start: 20090611, end: 20090616
  2. PROTONIX (PANTROPRAZOLE) [Concomitant]
  3. LISINOPRIL [Concomitant]
  4. FOLIC ACID [Concomitant]
  5. CELEXA [Concomitant]
  6. VITAMIN B-12 [Concomitant]
  7. TYLENOL [Concomitant]
  8. LEVOXYL [Concomitant]
  9. MAGNESIUM (MAGNESIUM) [Concomitant]

REACTIONS (2)
  - PNEUMONIA [None]
  - PULMONARY THROMBOSIS [None]
